FAERS Safety Report 5733125-9 (Version None)
Quarter: 2008Q2

REPORT INFORMATION
  Report Type: 
  Country: None (occurrence: None)
  Receive Date: 20080509
  Receipt Date: 20080509
  Transmission Date: 20081010
  Serious: Yes (Hospitalization)
  Sender: FDA-Public Use
  Company Number: None

PATIENT

DRUGS (3)
  1. HEPARIN [Suspect]
     Indication: CARDIAC DISORDER
     Dosage: CONTINUOUS DRIP CONTINUOUS INTRACAVERN
     Route: 017
     Dates: start: 20071001, end: 20080331
  2. HEPARIN [Suspect]
     Indication: DEEP VEIN THROMBOSIS
     Dosage: CONTINUOUS DRIP CONTINUOUS INTRACAVERN
     Route: 017
     Dates: start: 20071001, end: 20080331
  3. HEPARIN [Suspect]
     Indication: THROMBOSIS PROPHYLAXIS
     Dosage: 5000 UNITS Q8H OR Q12H SQ
     Route: 058

REACTIONS (1)
  - HEPARIN-INDUCED THROMBOCYTOPENIA [None]
